FAERS Safety Report 11044678 (Version 1)
Quarter: 2015Q2

REPORT INFORMATION
  Report Type: Spontaneous
  Country: FR (occurrence: FR)
  Receive Date: 20150417
  Receipt Date: 20150417
  Transmission Date: 20150821
  Serious: Yes (Life-Threatening, Hospitalization, Other)
  Sender: FDA-Public Use
  Company Number: FR-GILEAD-2015-0149066

PATIENT
  Age: 51 Year
  Sex: Male

DRUGS (2)
  1. DACLATASVIR [Suspect]
     Active Substance: DACLATASVIR
     Indication: HEPATITIS C
     Dosage: UNK
     Route: 048
     Dates: start: 20140415, end: 20141002
  2. SOVALDI [Suspect]
     Active Substance: SOFOSBUVIR
     Indication: HEPATITIS C
     Dosage: UNK
     Route: 048
     Dates: start: 20140415, end: 20141002

REACTIONS (2)
  - Portal vein thrombosis [Recovering/Resolving]
  - Mesenteric vein thrombosis [Recovering/Resolving]

NARRATIVE: CASE EVENT DATE: 201502
